FAERS Safety Report 5068406-8 (Version None)
Quarter: 2006Q3

REPORT INFORMATION
  Report Type: 
  Country: None (occurrence: None)
  Receive Date: 20060802
  Receipt Date: 20050913
  Transmission Date: 20061208
  Serious: No
  Sender: FDA-Public Use
  Company Number: US-BRISTOL-MYERS SQUIBB COMPANY-13109699

PATIENT
  Age: 47 Year
  Sex: Female
  Weight: 65 kg

DRUGS (11)
  1. COUMADIN [Suspect]
     Indication: HEART VALVE REPLACEMENT
     Dosage: STARTED TAKING 22 MG / WEEK AND THE DOSE CHANGES EACH WEEK DEPENDING ON PT/INR VALUE
     Dates: start: 20011101
  2. LIPITOR [Concomitant]
  3. OXYCONTIN [Concomitant]
  4. NORFLEX [Concomitant]
  5. MIRALAX [Concomitant]
  6. VERAPAMIL [Concomitant]
  7. PROVIGIL [Concomitant]
  8. LECITHIN [Concomitant]
  9. MULTIVITAMIN [Concomitant]
  10. EVENING PRIMROSE OIL [Concomitant]
  11. ROBITUSSIN [Concomitant]

REACTIONS (1)
  - INTERNATIONAL NORMALISED RATIO FLUCTUATION [None]
